FAERS Safety Report 10202716 (Version 2)
Quarter: 2014Q2

REPORT INFORMATION
  Report Type: Spontaneous
  Country: FR (occurrence: FR)
  Receive Date: 20140528
  Receipt Date: 20140620
  Transmission Date: 20141212
  Serious: Yes (Death)
  Sender: FDA-Public Use
  Company Number: FR-PFIZER INC-2014145271

PATIENT
  Age: 60 Year
  Sex: Female

DRUGS (8)
  1. OXAZEPAM [Suspect]
     Dosage: UNK
  2. ALPRAZOLAM [Suspect]
     Dosage: UNK
  3. LORAZEPAM [Suspect]
     Dosage: UNK
  4. LORMETAZEPAM [Suspect]
     Dosage: UNK
  5. QUETIAPINE FUMARATE [Suspect]
     Dosage: UNK
  6. ZOPICLONE [Suspect]
     Dosage: UNK
  7. BROMAZEPAM [Suspect]
     Dosage: UNK
  8. CYAMEMAZINE [Suspect]
     Dosage: UNK

REACTIONS (2)
  - Completed suicide [Fatal]
  - Toxicity to various agents [Fatal]
